FAERS Safety Report 6239460 (Version 11)
Quarter: 2013Q4

REPORT INFORMATION
  Report Type: Spontaneous
  Country: DE (occurrence: KE)
  Receive Date: 20070216
  Receipt Date: 20131101
  Transmission Date: 20140711
  Serious: Yes (Hospitalization, Other)
  Sender: FDA-Public Use
  Company Number: DE-ROCHE-457571

PATIENT
  Age: 36 Year
  Sex: Female
  Weight: 68 kg

DRUGS (1)
  1. LARIAM [Suspect]
     Indication: MALARIA PROPHYLAXIS
     Dosage: DOSAGE REGIMEN REPORTED AS FOUR TABS IN TOTAL. WEEKLY DOSAGE.
     Route: 065
     Dates: start: 20060530, end: 20060620

REACTIONS (29)
  - Agitation [Unknown]
  - Anxiety [Unknown]
  - Depression [Recovering/Resolving]
  - Pyrexia [Recovering/Resolving]
  - Upper respiratory tract infection [Recovering/Resolving]
  - Abnormal dreams [Not Recovered/Not Resolved]
  - Headache [Recovering/Resolving]
  - Tachycardia [Recovering/Resolving]
  - Tinnitus [Not Recovered/Not Resolved]
  - Dyspepsia [Not Recovered/Not Resolved]
  - Paraesthesia [Not Recovered/Not Resolved]
  - Asthenia [Recovering/Resolving]
  - Mental disorder [Not Recovered/Not Resolved]
  - Formication [Not Recovered/Not Resolved]
  - Feeling abnormal [Not Recovered/Not Resolved]
  - Vertigo [Not Recovered/Not Resolved]
  - Sleep disorder [Not Recovered/Not Resolved]
  - Coordination abnormal [Not Recovered/Not Resolved]
  - Disturbance in attention [Not Recovered/Not Resolved]
  - Fatigue [Not Recovered/Not Resolved]
  - Muscle twitching [Not Recovered/Not Resolved]
  - Local swelling [Not Recovered/Not Resolved]
  - Night sweats [Recovering/Resolving]
  - Cardiovascular disorder [Recovering/Resolving]
  - Unevaluable event [Not Recovered/Not Resolved]
  - Feeling abnormal [Recovering/Resolving]
  - Malaise [Not Recovered/Not Resolved]
  - Headache [Recovering/Resolving]
  - Local swelling [Recovering/Resolving]
